FAERS Safety Report 8257488-8 (Version None)
Quarter: 2012Q2

REPORT INFORMATION
  Report Type: 
  Country: None (occurrence: None)
  Receive Date: 20120403
  Receipt Date: 20120228
  Transmission Date: 20120825
  Serious: Yes (Disabling)
  Sender: FDA-Public Use
  Company Number: PHHO2012CA003758

PATIENT
  Sex: Female
  Weight: 62 kg

DRUGS (5)
  1. EXJADE [Suspect]
     Indication: IRON OVERLOAD
     Dosage: UNK
     Route: 048
     Dates: start: 20111229, end: 20120111
  2. OMEPRAZOLE [Concomitant]
     Indication: GASTROOESOPHAGEAL REFLUX DISEASE
     Dosage: 20 MG, QD
     Route: 048
  3. ZOPICLONE [Concomitant]
     Indication: INSOMNIA
     Dosage: 75 MG, QD
     Route: 048
  4. EXJADE [Suspect]
     Dosage: UNK
     Dates: start: 20120112
  5. TYLENOL [Concomitant]
     Indication: ABDOMINAL PAIN
     Dosage: 1-2 TAB
     Route: 048

REACTIONS (1)
  - VITREOUS FLOATERS [None]
